FAERS Safety Report 9331022 (Version 1)
Quarter: 2013Q2

REPORT INFORMATION
  Report Type: Spontaneous
  Country: US (occurrence: None)
  Receive Date: 20130531
  Receipt Date: 20130531
  Transmission Date: 20140414
  Serious: Yes (Death)
  Sender: FDA-Public Use
  Company Number: NPIL/SEV/H/2013/59

PATIENT
  Age: 51 Year
  Sex: Male

DRUGS (4)
  1. SEVOFLURANE [Suspect]
     Indication: ANAESTHESIA
  2. PROPOFOL [Concomitant]
  3. CLONIDINE [Concomitant]
  4. NALOXONE [Concomitant]

REACTIONS (6)
  - Ventricular fibrillation [None]
  - Hypokalaemia [None]
  - Agitation [None]
  - Hypertension [None]
  - Tachycardia [None]
  - Hypoxic-ischaemic encephalopathy [None]
